FAERS Safety Report 21049313 (Version 3)
Quarter: 2022Q3

REPORT INFORMATION
  Report Type: Spontaneous
  Country: DE (occurrence: DE)
  Receive Date: 20220706
  Receipt Date: 20220811
  Transmission Date: 20221027
  Serious: Yes (Hospitalization)
  Sender: FDA-Public Use
  Company Number: DE-ALLERGAN-2221508US

PATIENT
  Sex: Female
  Weight: 58 kg

DRUGS (2)
  1. VISTABEL [Suspect]
     Active Substance: BOTULINUM TOXIN TYPE A
     Indication: Skin wrinkling
     Dosage: 5X2 1X INJECTION 10 MINUTES
     Route: 030
     Dates: start: 20220617, end: 20220617
  2. VISTABEL [Suspect]
     Active Substance: BOTULINUM TOXIN TYPE A
     Indication: Prophylaxis

REACTIONS (6)
  - Dysgeusia [Recovered/Resolved]
  - Orthostatic hypotension [Unknown]
  - Dizziness [Recovering/Resolving]
  - Dyspnoea [Recovered/Resolved]
  - Asthenia [Recovering/Resolving]
  - Hypersensitivity [Unknown]

NARRATIVE: CASE EVENT DATE: 20220617
